FAERS Safety Report 20840328 (Version 1)
Quarter: 2022Q2

REPORT INFORMATION
  Report Type: Spontaneous
  Country: US (occurrence: None)
  Receive Date: 20220516
  Receipt Date: 20220516
  Transmission Date: 20220721
  Serious: Yes (Other)
  Sender: FDA-Public Use
  Company Number: None

PATIENT
  Age: 46 Year
  Sex: Female

DRUGS (2)
  1. AMBRISENTAN [Suspect]
     Active Substance: AMBRISENTAN
     Indication: Pulmonary hypertension
     Dosage: 5MG QD ORAL
     Route: 048
     Dates: start: 20220324, end: 20220425
  2. TADALAFIL [Suspect]
     Active Substance: TADALAFIL

REACTIONS (2)
  - Oedema [None]
  - Malaise [None]

NARRATIVE: CASE EVENT DATE: 20220425
